FAERS Safety Report 13575976 (Version 1)
Quarter: 2017Q2

REPORT INFORMATION
  Report Type: Spontaneous
  Country: US (occurrence: US)
  Receive Date: 20170524
  Receipt Date: 20170524
  Transmission Date: 20170830
  Serious: No
  Sender: FDA-Public Use
  Company Number: US-PFIZER INC-2017223472

PATIENT
  Sex: Female

DRUGS (2)
  1. XELJANZ XR [Suspect]
     Active Substance: TOFACITINIB CITRATE
     Indication: RHEUMATOID ARTHRITIS
     Dosage: 11 MG, UNK
  2. METHOTREXATE. [Concomitant]
     Active Substance: METHOTREXATE
     Indication: RHEUMATOID ARTHRITIS
     Dosage: UNK

REACTIONS (32)
  - Neck pain [Unknown]
  - Arthralgia [Unknown]
  - Nervousness [Unknown]
  - Dyspnoea [Unknown]
  - Abdominal pain [Unknown]
  - Back pain [Unknown]
  - Wheezing [Unknown]
  - Dyspepsia [Unknown]
  - Nodule [Unknown]
  - Weight increased [Unknown]
  - Asthenia [Unknown]
  - Nausea [Unknown]
  - Myalgia [Unknown]
  - Muscle spasms [Unknown]
  - Disturbance in attention [Unknown]
  - Hypoaesthesia [Unknown]
  - Headache [Unknown]
  - Dry eye [Unknown]
  - Stomatitis [Unknown]
  - Synovitis [Unknown]
  - Fatigue [Unknown]
  - Chest pain [Unknown]
  - Dysphagia [Unknown]
  - Memory impairment [Unknown]
  - Parosmia [Unknown]
  - Anxiety [Unknown]
  - Sleep disorder [Unknown]
  - Lymphadenopathy [Unknown]
  - Dry mouth [Unknown]
  - Palpitations [Unknown]
  - Cough [Unknown]
  - Joint swelling [Unknown]
